FAERS Safety Report 10673275 (Version 2)
Quarter: 2014Q4

REPORT INFORMATION
  Report Type: Spontaneous
  Country: US (occurrence: US)
  Receive Date: 20141224
  Receipt Date: 20141224
  Transmission Date: 20150529
  Serious: Yes (Hospitalization, Other)
  Sender: FDA-Public Use
  Company Number: US-AMGEN-USASP2014086009

PATIENT
  Age: 42 Year
  Sex: Female

DRUGS (1)
  1. ENBREL [Suspect]
     Active Substance: ETANERCEPT
     Indication: RHEUMATOID ARTHRITIS
     Dosage: 50 MG, QWK
     Route: 065
     Dates: start: 20120820

REACTIONS (9)
  - Pain [Recovered/Resolved]
  - Gait disturbance [Recovered/Resolved]
  - Pneumonia [Recovered/Resolved]
  - Sinusitis [Recovered/Resolved]
  - Nasopharyngitis [Recovered/Resolved]
  - Middle ear effusion [Recovered/Resolved]
  - Musculoskeletal chest pain [Recovered/Resolved]
  - Upper respiratory tract infection [Recovered/Resolved]
  - Atypical pneumonia [Recovered/Resolved]

NARRATIVE: CASE EVENT DATE: 2012
